FAERS Safety Report 23539170 (Version 7)
Quarter: 2024Q3

REPORT INFORMATION
  Report Type: Report from Study
  Country: US (occurrence: US)
  Receive Date: 20240219
  Receipt Date: 20240903
  Transmission Date: 20241016
  Serious: Yes (Hospitalization, Other)
  Sender: INSMED
  Company Number: US-INSMED, INC.-2023-04862-US

PATIENT
  Age: 77 Year
  Sex: Female

DRUGS (2)
  1. ARIKAYCE [Suspect]
     Active Substance: AMIKACIN
     Indication: Product used for unknown indication
     Dosage: 590 MILLIGRAM, TIW
     Route: 055
     Dates: start: 20231213, end: 20231218
  2. ARIKAYCE [Suspect]
     Active Substance: AMIKACIN
     Dosage: 590 MILLIGRAM, UNK
     Route: 055
     Dates: start: 202401, end: 202401

REACTIONS (21)
  - Hospitalisation [Unknown]
  - Back disorder [Unknown]
  - Oral surgery [Recovering/Resolving]
  - Medical device implantation [Unknown]
  - Radiotherapy [Unknown]
  - Myocardial infarction [Unknown]
  - Thrombosis [Unknown]
  - Neuropathy peripheral [Unknown]
  - Musculoskeletal stiffness [Unknown]
  - Fibromyalgia [Unknown]
  - Tearfulness [Unknown]
  - Nodule [Recovering/Resolving]
  - Dysgeusia [Not Recovered/Not Resolved]
  - Fatigue [Not Recovered/Not Resolved]
  - Dizziness [Not Recovered/Not Resolved]
  - Cough [Unknown]
  - Off label use [Unknown]
  - Therapy interrupted [Unknown]
  - Intentional dose omission [Unknown]
  - Product dose omission issue [Unknown]
  - Inability to afford medication [Unknown]

NARRATIVE: CASE EVENT DATE: 20231213
